FAERS Safety Report 5215892-6 (Version None)
Quarter: 2007Q1

REPORT INFORMATION
  Report Type: 
  Country: None (occurrence: None)
  Receive Date: 20070118
  Receipt Date: 20070111
  Transmission Date: 20070707
  Serious: Yes (Hospitalization)
  Sender: FDA-Public Use
  Company Number: 163-21880-06120422

PATIENT
  Age: 70 Year
  Sex: Female

DRUGS (2)
  1. REVLIMID [Suspect]
     Indication: MULTIPLE MYELOMA
     Dosage: 15 MG, 1 IN 1 D, ORAL; 1 IN 1 D, ORAL
     Route: 048
     Dates: start: 20060928, end: 20060101
  2. REVLIMID [Suspect]
     Indication: MULTIPLE MYELOMA
     Dosage: 15 MG, 1 IN 1 D, ORAL; 1 IN 1 D, ORAL
     Route: 048
     Dates: start: 20060707, end: 20060901

REACTIONS (4)
  - DISEASE PROGRESSION [None]
  - MULTIPLE MYELOMA [None]
  - PANCYTOPENIA [None]
  - PATHOLOGICAL FRACTURE [None]
